FAERS Safety Report 18140532 (Version 2)
Quarter: 2021Q4

REPORT INFORMATION
  Report Type: Spontaneous
  Country: US (occurrence: US)
  Receive Date: 20200812
  Receipt Date: 20211230
  Transmission Date: 20220303
  Serious: Yes (Other)
  Sender: FDA-Public Use
  Company Number: US-PFIZER INC-2020307135

PATIENT
  Age: 81 Year
  Sex: Male

DRUGS (2)
  1. VYNDAMAX [Suspect]
     Active Substance: TAFAMIDIS
     Dosage: 61 MG, 1X/DAY AT NOON
  2. METFORMIN [Concomitant]
     Active Substance: METFORMIN HYDROCHLORIDE
     Indication: Diabetes mellitus

REACTIONS (5)
  - Diabetes mellitus [Unknown]
  - Blood glucose decreased [Unknown]
  - Dyspnoea [Unknown]
  - Limb injury [Recovering/Resolving]
  - Hypotension [Unknown]
